FAERS Safety Report 10188886 (Version 4)
Quarter: 2017Q1

REPORT INFORMATION
  Report Type: Spontaneous
  Country: US (occurrence: US)
  Receive Date: 20140522
  Receipt Date: 20170104
  Transmission Date: 20170428
  Serious: Yes (Hospitalization)
  Sender: FDA-Public Use
  Company Number: US-PFIZER INC-2014138972

PATIENT
  Age: 66 Year
  Sex: Female

DRUGS (14)
  1. XELJANZ [Suspect]
     Active Substance: TOFACITINIB CITRATE
     Dosage: 20 MG, 1X/DAY
     Dates: start: 2014, end: 20160909
  2. VITAMIN C [Concomitant]
     Active Substance: ASCORBIC ACID
     Dosage: UNK
  3. TRAMADOL. [Concomitant]
     Active Substance: TRAMADOL
     Dosage: UNK
     Dates: start: 2011
  4. DULOXETINE. [Concomitant]
     Active Substance: DULOXETINE
     Dosage: UNK
     Dates: start: 2011
  5. FISH OIL [Concomitant]
     Active Substance: FISH OIL
     Dosage: UNK
     Dates: start: 2015, end: 2016
  6. XELJANZ [Suspect]
     Active Substance: TOFACITINIB CITRATE
     Dosage: 5 MG, 2X/DAY
     Route: 048
     Dates: end: 20160909
  7. ESTRACE [Concomitant]
     Active Substance: ESTRADIOL
     Dosage: UNK
     Dates: start: 2013
  8. OMEPRAZOLE. [Concomitant]
     Active Substance: OMEPRAZOLE
     Dosage: UNK
     Dates: start: 2009
  9. COREG [Concomitant]
     Active Substance: CARVEDILOL
     Dosage: UNK
     Dates: start: 2000
  10. XELJANZ [Suspect]
     Active Substance: TOFACITINIB CITRATE
     Indication: RHEUMATOID ARTHRITIS
     Dosage: 5 MG, 2X/DAY [5MG TWICE DAILY]
     Route: 048
     Dates: start: 20140510
  11. CALCIUM [Concomitant]
     Active Substance: CALCIUM
     Dosage: UNK
     Dates: start: 2013
  12. VITAMIN D [Concomitant]
     Active Substance: CHOLECALCIFEROL
     Dosage: UNK
     Dates: start: 2013
  13. ASA [Concomitant]
     Active Substance: ASPIRIN
     Dosage: UNK
  14. MELOXICAM. [Concomitant]
     Active Substance: MELOXICAM
     Dosage: UNK
     Dates: start: 2009, end: 2016

REACTIONS (17)
  - Drug ineffective [Unknown]
  - Asthenia [Not Recovered/Not Resolved]
  - Product use issue [Unknown]
  - Fatigue [Not Recovered/Not Resolved]
  - Abdominal pain [Recovered/Resolved]
  - Chest pain [Not Recovered/Not Resolved]
  - Vision blurred [Recovered/Resolved]
  - Abdominal discomfort [Recovered/Resolved]
  - Body temperature increased [Recovered/Resolved]
  - Nausea [Recovered/Resolved]
  - Dyspepsia [Recovered/Resolved]
  - Cystitis [Recovered/Resolved]
  - Headache [Recovered/Resolved]
  - Eye disorder [Recovered/Resolved]
  - Abdominal pain upper [Recovered/Resolved]
  - Dizziness [Recovered/Resolved]
  - Hot flush [Recovered/Resolved]

NARRATIVE: CASE EVENT DATE: 2014
